FAERS Safety Report 12162115 (Version 1)
Quarter: 2016Q1

REPORT INFORMATION
  Report Type: Spontaneous
  Country: US (occurrence: None)
  Receive Date: 20160308
  Receipt Date: 20160308
  Transmission Date: 20160526
  Serious: Yes (Hospitalization)
  Sender: FDA-Public Use
  Company Number: None

PATIENT
  Age: 85 Year
  Sex: Female
  Weight: 58.1 kg

DRUGS (8)
  1. POTASSIUM GLUC [Concomitant]
  2. APIXABAN [Suspect]
     Active Substance: APIXABAN
     Indication: ATRIAL FIBRILLATION
     Dosage: CHRONIC
     Route: 048
  3. LASIX [Concomitant]
     Active Substance: FUROSEMIDE
  4. SOTALOL. [Concomitant]
     Active Substance: SOTALOL
  5. ACORBIC ACID [Concomitant]
  6. MVI [Concomitant]
     Active Substance: VITAMINS
  7. APIXABAN [Suspect]
     Active Substance: APIXABAN
     Indication: DEEP VEIN THROMBOSIS
     Dosage: CHRONIC
     Route: 048
  8. APIXABAN [Suspect]
     Active Substance: APIXABAN
     Indication: PULMONARY EMBOLISM
     Dosage: CHRONIC
     Route: 048

REACTIONS (2)
  - Diverticulum intestinal haemorrhagic [None]
  - Anaemia [None]

NARRATIVE: CASE EVENT DATE: 20151116
